FAERS Safety Report 18636302 (Version 1)
Quarter: 2020Q4

REPORT INFORMATION
  Report Type: Report from Study
  Country: US (occurrence: US)
  Receive Date: 20201218
  Receipt Date: 20201218
  Transmission Date: 20210114
  Serious: Yes (Hospitalization, Other)
  Sender: FDA-Public Use
  Company Number: US-REGENERON PHARMACEUTICALS, INC.-2020-32545

PATIENT

DRUGS (2)
  1. EYLEA [Suspect]
     Active Substance: AFLIBERCEPT
     Indication: DIABETIC RETINOPATHY
     Dosage: INJECTIONS EVERY 6 WEEKS
     Route: 031
     Dates: start: 201201
  2. EYLEA [Suspect]
     Active Substance: AFLIBERCEPT
     Indication: DIABETIC RETINAL OEDEMA
     Dosage: INJECTIONS EVERY 6 WEEKS
     Route: 031
     Dates: start: 202004, end: 202004

REACTIONS (9)
  - Limb injury [Recovering/Resolving]
  - Impaired healing [Unknown]
  - Retinal tear [Unknown]
  - Diabetic nephropathy [Unknown]
  - Product dose omission issue [Unknown]
  - Diplopia [Unknown]
  - Pain [Unknown]
  - Vascular calcification [Recovering/Resolving]
  - Visual field defect [Not Recovered/Not Resolved]

NARRATIVE: CASE EVENT DATE: 2020
